FAERS Safety Report 16892135 (Version 2)
Quarter: 2020Q2

REPORT INFORMATION
  Report Type: Spontaneous
  Country: CA (occurrence: CA)
  Receive Date: 20191007
  Receipt Date: 20200526
  Transmission Date: 20200713
  Serious: Yes (Hospitalization)
  Sender: FDA-Public Use
  Company Number: CA-AMGEN-CANSP2019160827

PATIENT
  Age: 93 Year
  Sex: Female
  Weight: 42 kg

DRUGS (19)
  1. DIGOXIN. [Concomitant]
     Active Substance: DIGOXIN
  2. MULTIVITAMINS [VITAMINS NOS] [Concomitant]
     Active Substance: VITAMINS
  3. FORZA-10 [Concomitant]
  4. COUMADIN [Concomitant]
     Active Substance: WARFARIN SODIUM
  5. PREDNISONE. [Concomitant]
     Active Substance: PREDNISONE
  6. REMERON [Concomitant]
     Active Substance: MIRTAZAPINE
  7. SYNTHROID [Concomitant]
     Active Substance: LEVOTHYROXINE SODIUM
  8. VITAMIN D [ERGOCALCIFEROL] [Concomitant]
     Active Substance: ERGOCALCIFEROL
  9. TYLENOL [Concomitant]
     Active Substance: ACETAMINOPHEN
  10. THIAMINE. [Concomitant]
     Active Substance: THIAMINE
  11. PROLIA [Suspect]
     Active Substance: DENOSUMAB
     Indication: OSTEOPOROSIS
     Dosage: 60 MILLIGRAM, ONCE
     Route: 058
     Dates: start: 20190919
  12. AMLODIPINE [Concomitant]
     Active Substance: AMLODIPINE BESYLATE
  13. REMERON RD [Concomitant]
     Active Substance: MIRTAZAPINE
     Route: 048
  14. VITAMIN B1 [Concomitant]
     Active Substance: THIAMINE HYDROCHLORIDE
  15. PEGALAX [Concomitant]
  16. CALCIUM [Concomitant]
     Active Substance: CALCIUM
  17. FUROSEMIDE. [Concomitant]
     Active Substance: FUROSEMIDE
  18. IPRATROPIUM [Concomitant]
     Active Substance: IPRATROPIUM
  19. SALBUTAMOL [Concomitant]
     Active Substance: ALBUTEROL

REACTIONS (2)
  - Platelet count decreased [Not Recovered/Not Resolved]
  - Haemoglobin decreased [Not Recovered/Not Resolved]

NARRATIVE: CASE EVENT DATE: 20190919
